FAERS Safety Report 6911884-7 (Version None)
Quarter: 2010Q3

REPORT INFORMATION
  Report Type: 
  Country: None (occurrence: None)
  Receive Date: 20100806
  Receipt Date: 20070901
  Transmission Date: 20110219
  Serious: No
  Sender: FDA-Public Use
  Company Number: US-PFIZER INC-2007073412

PATIENT
  Sex: Female
  Weight: 73.48 kg

DRUGS (9)
  1. DETROL LA [Suspect]
     Indication: MICTURITION URGENCY
     Dates: start: 20070801
  2. CLINDAMYCIN [Concomitant]
  3. HYDROCODONE BITARTRATE [Concomitant]
  4. BUPROPION HCL [Concomitant]
  5. LEVOTHYROXINE [Concomitant]
  6. LORAZEPAM [Concomitant]
  7. CITALOPRAM [Concomitant]
  8. SEROQUEL [Concomitant]
  9. ALL OTHER THERAPEUTIC PRODUCTS [Concomitant]

REACTIONS (2)
  - ABDOMINAL PAIN [None]
  - CONSTIPATION [None]
